FAERS Safety Report 18248850 (Version 1)
Quarter: 2020Q3

REPORT INFORMATION
  Report Type: Report from Study
  Country: None (occurrence: US)
  Receive Date: 20200909
  Receipt Date: 20200909
  Transmission Date: 20201103
  Serious: Yes (Other)
  Sender: FDA-Public Use
  Company Number: US-ABBVIE-20K-163-3510126-00

PATIENT
  Sex: Female

DRUGS (1)
  1. HUMIRA [Suspect]
     Active Substance: ADALIMUMAB
     Indication: PSORIATIC ARTHROPATHY
     Dosage: CITRATE FREE
     Route: 058

REACTIONS (7)
  - Fatigue [Unknown]
  - Tumour pain [Unknown]
  - Brain neoplasm [Unknown]
  - Feeling hot [Unknown]
  - Trigger finger [Recovering/Resolving]
  - Psoriatic arthropathy [Unknown]
  - Pain in jaw [Unknown]

NARRATIVE: CASE EVENT DATE: 2016
